FAERS Safety Report 4617894-7 (Version None)
Quarter: 2005Q1

REPORT INFORMATION
  Report Type: 
  Country: None (occurrence: None)
  Receive Date: 20050322
  Receipt Date: 20050316
  Transmission Date: 20050727
  Serious: Yes (Other)
  Sender: FDA-Public Use
  Company Number: GBWYE508416MAR05

PATIENT
  Age: 61 Year
  Sex: Male

DRUGS (1)
  1. EFFEXOR XR [Suspect]
     Dosage: 75 MG ORAL
     Route: 048
     Dates: start: 20020918

REACTIONS (1)
  - CARDIOMYOPATHY [None]
